FAERS Safety Report 7032779-7 (Version None)
Quarter: 2010Q4

REPORT INFORMATION
  Report Type: 
  Country: None (occurrence: None)
  Receive Date: 20101007
  Receipt Date: 20100930
  Transmission Date: 20110411
  Serious: No
  Sender: FDA-Public Use
  Company Number: US-PFIZER INC-2010095093

PATIENT
  Sex: Female

DRUGS (1)
  1. VIBRAMYCIN [Suspect]
     Dosage: 100 MG, 2X/DAY
     Route: 048

REACTIONS (3)
  - DIARRHOEA [None]
  - DYSPHAGIA [None]
  - VOMITING [None]
